FAERS Safety Report 6740747-5 (Version None)
Quarter: 2010Q2

REPORT INFORMATION
  Report Type: 
  Country: None (occurrence: None)
  Receive Date: 20100524
  Receipt Date: 20100513
  Transmission Date: 20101027
  Serious: Yes (Hospitalization)
  Sender: FDA-Public Use
  Company Number: 2010US001656

PATIENT
  Age: 78 Year
  Sex: Female

DRUGS (8)
  1. VESICARE [Suspect]
     Indication: BLADDER OPERATION
     Dosage: 10 MG, /D, ORAL; 5 MG, /D, ORAL
     Route: 048
     Dates: start: 20080101, end: 20090101
  2. VESICARE [Suspect]
     Indication: BLADDER OPERATION
     Dosage: 10 MG, /D, ORAL; 5 MG, /D, ORAL
     Route: 048
     Dates: start: 20090101
  3. DILANTIN [Concomitant]
  4. CELEBREX [Concomitant]
  5. NEXIUM IV [Concomitant]
  6. CLONAZEPAM [Concomitant]
  7. TRAMADOL HCL [Concomitant]
  8. LISINOPRIL [Concomitant]

REACTIONS (2)
  - HEART VALVE INCOMPETENCE [None]
  - URINARY INCONTINENCE [None]
